FAERS Safety Report 8720523 (Version 2)
Quarter: 2019Q4

REPORT INFORMATION
  Report Type: Report from Study
  Country: US (occurrence: US)
  Receive Date: 20120813
  Receipt Date: 20191122
  Transmission Date: 20200122
  Serious: Yes (Life-Threatening, Hospitalization, Other)
  Sender: FDA-Public Use
  Company Number: US-ROCHE-1098608

PATIENT
  Age: 69 Year
  Sex: Female
  Weight: 71.28 kg

DRUGS (1)
  1. TRASTUZUMAB. [Suspect]
     Active Substance: TRASTUZUMAB
     Indication: BREAST CANCER
     Dosage: FORM STRENGTH: 21 MG/ML
     Route: 042
     Dates: start: 20120727

REACTIONS (5)
  - Oral contusion [Unknown]
  - Platelet count decreased [Recovered/Resolved]
  - Petechiae [Unknown]
  - Gingival bleeding [Unknown]
  - Contusion [Unknown]

NARRATIVE: CASE EVENT DATE: 20120803
